FAERS Safety Report 7417154-5 (Version None)
Quarter: 2011Q2

REPORT INFORMATION
  Report Type: 
  Country: None (occurrence: None)
  Receive Date: 20110415
  Receipt Date: 20101108
  Transmission Date: 20111010
  Serious: Yes (Hospitalization)
  Sender: FDA-Public Use
  Company Number: US-BAYER-201031211NA

PATIENT
  Age: 24 Year
  Sex: Female
  Weight: 95 kg

DRUGS (6)
  1. OCELLA [Suspect]
     Indication: CONTRACEPTION
     Dosage: UNK
     Route: 048
     Dates: start: 20080601, end: 20081101
  2. YASMIN [Suspect]
     Indication: CONTRACEPTION
     Dosage: UNK
     Route: 048
     Dates: start: 20060301, end: 20061001
  3. YAZ [Suspect]
     Indication: CONTRACEPTION
     Dosage: UNK
     Route: 048
     Dates: start: 20070701, end: 20071001
  4. YASMIN [Suspect]
     Dosage: UNK
     Dates: start: 20061201, end: 20070601
  5. YASMIN [Suspect]
     Dosage: UNK
     Dates: start: 20071001, end: 20080601
  6. NEXIUM [Concomitant]
     Indication: GASTRIC DISORDER
     Dosage: UNK
     Dates: start: 20050901, end: 20081201

REACTIONS (3)
  - ABDOMINAL PAIN UPPER [None]
  - BILE DUCT STONE [None]
  - PANCREATITIS [None]
